FAERS Safety Report 4973447-2 (Version None)
Quarter: 2006Q2

REPORT INFORMATION
  Report Type: 
  Country: None (occurrence: None)
  Receive Date: 20060407
  Receipt Date: 20060327
  Transmission Date: 20061013
  Serious: Yes (Hospitalization)
  Sender: FDA-Public Use
  Company Number: 2006042938

PATIENT
  Age: 52 Year
  Sex: Female
  Weight: 46 kg

DRUGS (7)
  1. SUTENT [Suspect]
     Indication: METASTATIC RENAL CELL CARCINOMA
     Dosage: 50 MG (50 MG, 1 IN 1 D), ORAL
     Route: 048
     Dates: start: 20060315, end: 20060324
  2. OPIPRAMOL (OPIPRAMOL) [Concomitant]
  3. FERROUS GLYCINE SULFATE (FERROUS GLYCINE SULFATE) [Concomitant]
  4. NOVAMINSULFON ^BRAUN^ (METAMIZOLE SODIUM) [Concomitant]
  5. NORDAZEPAM (NORDAZEPAM) [Concomitant]
  6. METOCLOPRAMIDE [Concomitant]
  7. EPOETIN BETA (EPOETIN BETA) [Concomitant]

REACTIONS (1)
  - ACUTE ABDOMEN [None]
